FAERS Safety Report 9778624 (Version 1)
Quarter: 2013Q4

REPORT INFORMATION
  Report Type: Spontaneous
  Country: FR (occurrence: FR)
  Receive Date: 20131223
  Receipt Date: 20131223
  Transmission Date: 20140711
  Serious: Yes (Life-Threatening)
  Sender: FDA-Public Use
  Company Number: FR-NOVOPROD-395784

PATIENT
  Age: 57 Year
  Sex: Female

DRUGS (9)
  1. VICTOZA [Suspect]
     Indication: TYPE 2 DIABETES MELLITUS
     Dosage: UNK
     Route: 058
     Dates: start: 20110103, end: 20131030
  2. STAGID [Suspect]
     Indication: TYPE 2 DIABETES MELLITUS
     Dosage: UNK
     Route: 048
     Dates: start: 20130103
  3. LANTUS [Concomitant]
     Dosage: UNK
     Route: 065
     Dates: start: 2003
  4. HUMALOG [Concomitant]
     Dosage: UNK
     Route: 065
     Dates: start: 2003
  5. TRIATEC                            /00116401/ [Concomitant]
     Dosage: UNK
     Route: 065
  6. SECTRAL [Concomitant]
     Dosage: UNK
     Route: 065
  7. CRESTOR [Concomitant]
     Dosage: UNK
     Route: 065
  8. FLUDEX                             /00340101/ [Concomitant]
     Dosage: UNK
     Route: 065
  9. DOLIPRANE [Concomitant]
     Dosage: UNK
     Route: 065

REACTIONS (1)
  - Adenocarcinoma pancreas [Not Recovered/Not Resolved]
